APPROVED DRUG PRODUCT: PLEGISOL IN PLASTIC CONTAINER
Active Ingredient: CALCIUM CHLORIDE; MAGNESIUM CHLORIDE; POTASSIUM CHLORIDE; SODIUM CHLORIDE
Strength: 17.6MG/100ML;325.3MG/100ML;119.3MG/100ML;643MG/100ML
Dosage Form/Route: SOLUTION;PERFUSION, CARDIAC
Application: N018608 | Product #001 | TE Code: AT
Applicant: HOSPIRA INC
Approved: Feb 26, 1982 | RLD: Yes | RS: Yes | Type: RX